FAERS Safety Report 20663321 (Version 1)
Quarter: 2022Q1

REPORT INFORMATION
  Report Type: Spontaneous
  Country: US (occurrence: None)
  Receive Date: 20220331
  Receipt Date: 20220331
  Transmission Date: 20220423
  Serious: Yes (Hospitalization)
  Sender: FDA-Public Use
  Company Number: None

PATIENT
  Age: 45 Year
  Sex: Female
  Weight: 71.1 kg

DRUGS (6)
  1. DYSPORT [Suspect]
     Active Substance: ABOBOTULINUMTOXINA
     Indication: Skin cosmetic procedure
  2. PENICILLIN [Concomitant]
     Active Substance: PENICILLIN
  3. LORATADINE [Concomitant]
     Active Substance: LORATADINE
  4. BENADRYL [Concomitant]
     Active Substance: DIPHENHYDRAMINE HYDROCHLORIDE
  5. PREDNISONE [Concomitant]
     Active Substance: PREDNISONE
  6. TYLENOL [Concomitant]
     Active Substance: ACETAMINOPHEN

REACTIONS (6)
  - Vision blurred [None]
  - Dry eye [None]
  - Headache [None]
  - Swelling face [None]
  - Sinusitis [None]
  - Upper respiratory tract infection [None]

NARRATIVE: CASE EVENT DATE: 20220225
